FAERS Safety Report 4815704-6 (Version None)
Quarter: 2005Q4

REPORT INFORMATION
  Report Type: 
  Country: None (occurrence: None)
  Receive Date: 20051027
  Receipt Date: 20051018
  Transmission Date: 20060501
  Serious: No
  Sender: FDA-Public Use
  Company Number: 05H-151-0303239-00

PATIENT
  Age: 36 Year
  Sex: Female
  Weight: 52 kg

DRUGS (4)
  1. SODIUM CHLORIDE [Suspect]
     Indication: HYSTEROSCOPY
     Dosage: INTRAVENOUS
     Route: 042
  2. PROPOFOL [Concomitant]
  3. FENTANYL [Concomitant]
  4. OXYGEN (OXYGEN) [Concomitant]

REACTIONS (9)
  - ACIDOSIS HYPERCHLORAEMIC [None]
  - AGITATION [None]
  - BLOOD PRESSURE INCREASED [None]
  - CONFUSIONAL STATE [None]
  - DILUTIONAL COAGULOPATHY [None]
  - FACE OEDEMA [None]
  - FLUID OVERLOAD [None]
  - PULMONARY OEDEMA [None]
  - TACHYCARDIA [None]
